FAERS Safety Report 14854700 (Version 1)
Quarter: 2018Q2

REPORT INFORMATION
  Report Type: Spontaneous
  Country: GB (occurrence: GB)
  Receive Date: 20180507
  Receipt Date: 20180507
  Transmission Date: 20180711
  Serious: Yes (Hospitalization)
  Sender: FDA-Public Use
  Company Number: GB-ALLERGAN-1824571US

PATIENT
  Age: 39 Year
  Sex: Male

DRUGS (1)
  1. ACAMPROSATE CALCIUM - BP [Suspect]
     Active Substance: ACAMPROSATE CALCIUM
     Indication: ALCOHOLISM
     Dosage: UNK
     Route: 065

REACTIONS (3)
  - Alcoholism [Unknown]
  - Malaise [Unknown]
  - Vomiting [Unknown]
